FAERS Safety Report 15635054 (Version 1)
Quarter: 2018Q4

REPORT INFORMATION
  Report Type: Spontaneous
  Country: US (occurrence: US)
  Receive Date: 20181119
  Receipt Date: 20181119
  Transmission Date: 20190205
  Serious: Yes (Other)
  Sender: FDA-Public Use
  Company Number: US-THERATECHNOLOGIES INC.-2018-THE-IBA-000036

PATIENT
  Sex: Female

DRUGS (1)
  1. TROGARZO [Suspect]
     Active Substance: IBALIZUMAB-UIYK
     Indication: HIV INFECTION
     Dosage: 800 MG, EVERY 2 WEEKS
     Route: 042
     Dates: start: 20180713

REACTIONS (2)
  - Neoplasm malignant [Not Recovered/Not Resolved]
  - Immobile [Not Recovered/Not Resolved]
